FAERS Safety Report 25264107 (Version 1)
Quarter: 2025Q2

REPORT INFORMATION
  Report Type: Spontaneous
  Country: US (occurrence: US)
  Receive Date: 20250502
  Receipt Date: 20250502
  Transmission Date: 20250717
  Serious: Yes (Death, Hospitalization, Other)
  Sender: AMGEN
  Company Number: US-AMGEN-USASP2025083179

PATIENT

DRUGS (1)
  1. PREDNISONE [Suspect]
     Active Substance: PREDNISONE
     Indication: Immunosuppressant drug therapy
     Route: 065

REACTIONS (12)
  - Cardiac failure [Fatal]
  - Cardiovascular disorder [Fatal]
  - End stage renal disease [Fatal]
  - Death [Fatal]
  - Heart transplant rejection [Unknown]
  - Hypertensive urgency [Unknown]
  - Hypervolaemia [Unknown]
  - Hypotension [Unknown]
  - Blood pressure increased [Unknown]
  - Heart rate increased [Unknown]
  - Blood pressure systolic increased [Unknown]
  - Ejection fraction decreased [Unknown]
